FAERS Safety Report 9405397 (Version 2)
Quarter: 2013Q4

REPORT INFORMATION
  Report Type: Spontaneous
  Country: CA (occurrence: None)
  Receive Date: 20130715
  Receipt Date: 20131023
  Transmission Date: 20140711
  Serious: Yes (Other)
  Sender: FDA-Public Use
  Company Number: 2013-002198

PATIENT
  Age: 53 Year
  Sex: Female
  Weight: 64 kg

DRUGS (3)
  1. ACTONEL [Suspect]
     Indication: OSTEOPOROSIS
     Route: 048
     Dates: start: 20120606, end: 20120606
  2. CALTRATE PLUS /01438001/ (CALCIUM, COLECALCIFEROL, COPPER, MAGNESIUM, MANGANESE, ZINC) [Concomitant]
  3. MULTIVIT (VITAMINS NOS) [Concomitant]

REACTIONS (3)
  - Pyrexia [None]
  - Abdominal pain [None]
  - Abdominal pain upper [None]
